FAERS Safety Report 20623735 (Version 3)
Quarter: 2022Q2

REPORT INFORMATION
  Report Type: Spontaneous
  Country: JP (occurrence: JP)
  Receive Date: 20220322
  Receipt Date: 20220606
  Transmission Date: 20220720
  Serious: Yes (Other)
  Sender: FDA-Public Use
  Company Number: JP-MSD-M2022-10979

PATIENT
  Age: 42 Year
  Sex: Female

DRUGS (2)
  1. MOLNUPIRAVIR [Suspect]
     Active Substance: MOLNUPIRAVIR
     Indication: COVID-19 treatment
     Dosage: 800 MILLIGRAM, BID
     Route: 048
     Dates: start: 20220310, end: 20220310
  2. VITAMEDIN [BENFOTIAMINE;CYANOCOBALAMIN;PYRIDOXINE HYDROCHLORIDE] [Concomitant]
     Indication: Illness
     Dosage: 25 MILLIGRAM, TID
     Route: 048
     Dates: start: 20220310, end: 20220310

REACTIONS (8)
  - Hemiplegia [Recovering/Resolving]
  - Pyrexia [Recovering/Resolving]
  - Dehydration [Unknown]
  - Cerebral disorder [Unknown]
  - Musculoskeletal stiffness [Recovering/Resolving]
  - Hyperventilation [Unknown]
  - Conjunctivitis [Unknown]
  - Taste disorder [Unknown]

NARRATIVE: CASE EVENT DATE: 20220310
